FAERS Safety Report 7284897-6 (Version None)
Quarter: 2011Q1

REPORT INFORMATION
  Report Type: 
  Country: None (occurrence: None)
  Receive Date: 20110210
  Receipt Date: 20110202
  Transmission Date: 20110831
  Serious: Yes (Life-Threatening, Other)
  Sender: FDA-Public Use
  Company Number: JP-BRISTOL-MYERS SQUIBB COMPANY-15491897

PATIENT
  Age: 30 Year
  Sex: Male
  Weight: 62 kg

DRUGS (5)
  1. ABILIFY [Suspect]
     Indication: SCHIZOPHRENIA
     Dosage: 24MG:26MAR-01APR09(7D) 18MG:02APR-09APR09(8D) 21MG:10APR-16APR09(7D) 9MG:17APR-20APR09(4D)
     Route: 048
     Dates: start: 20090324, end: 20090420
  2. ELECTROCONVULSIVE THERAPY [Concomitant]
  3. BROTIZOLAM [Concomitant]
     Dosage: TAB
     Dates: start: 20090118, end: 20091124
  4. FLUNITRAZEPAM [Concomitant]
     Dosage: TAB
     Dates: start: 20090408, end: 20100905
  5. AKINETON [Concomitant]
     Dosage: TAB
     Dates: start: 20090220, end: 20090513

REACTIONS (4)
  - SCHIZOPHRENIA [None]
  - AKATHISIA [None]
  - SUICIDE ATTEMPT [None]
  - SUBCUTANEOUS HAEMATOMA [None]
